FAERS Safety Report 8140110-9 (Version None)
Quarter: 2012Q1

REPORT INFORMATION
  Report Type: 
  Country: None (occurrence: None)
  Receive Date: 20120216
  Receipt Date: 20120210
  Transmission Date: 20120608
  Serious: Yes (Hospitalization)
  Sender: FDA-Public Use
  Company Number: GB-ACCORD-009857

PATIENT
  Age: 62 Year
  Sex: Male
  Weight: 73 kg

DRUGS (9)
  1. IRINOTECAN HCL [Suspect]
     Route: 042
     Dates: start: 20110426, end: 20110607
  2. MIXTARD HUMAN 70/30 [Concomitant]
  3. HUMALOG [Concomitant]
     Dosage: TWICE DAILY; ONGOING
  4. SIMVASTATIN [Concomitant]
     Indication: HYPERCHOLESTEROLAEMIA
     Dosage: ONGOING
     Route: 048
  5. LISINOPRIL [Concomitant]
     Indication: HYPERTENSION
     Dosage: ONGOING
     Route: 048
  6. FERROUS SULFATE TAB [Concomitant]
     Dosage: ONGOING
     Route: 048
  7. EYE DROPS [Concomitant]
     Indication: RETINOPATHY
     Route: 047
  8. LANSOPRAZOLE [Concomitant]
     Dosage: ONGOING
     Route: 048
  9. FLUOROURACIL [Suspect]
     Dosage: 750MG BOLUS AND 4440MG INFUSION OVER 46 HOURS
     Route: 042
     Dates: start: 20110426, end: 20110607

REACTIONS (1)
  - URINARY RETENTION [None]
